FAERS Safety Report 5532145-7 (Version None)
Quarter: 2007Q4

REPORT INFORMATION
  Report Type: 
  Country: None (occurrence: None)
  Receive Date: 20071129
  Receipt Date: 20071129
  Transmission Date: 20080405
  Serious: Yes (Other)
  Sender: FDA-Public Use
  Company Number: None

PATIENT
  Sex: Female
  Weight: 62.1428 kg

DRUGS (3)
  1. PROVENTIL-HFA [Suspect]
     Indication: ASTHMA
     Dosage: 2 PUFFS  4 X DAY  INHAL
     Route: 055
     Dates: start: 20070430, end: 20070725
  2. PROAIR HFA [Suspect]
     Indication: ASTHMA
     Dosage: 2 PUFFS   4 X DAY  INHAL
     Route: 055
     Dates: start: 20071025, end: 20071201
  3. ALBUTEROL SULFATE [Concomitant]

REACTIONS (4)
  - COUGH [None]
  - DRUG INEFFECTIVE [None]
  - DYSPNOEA [None]
  - WHEEZING [None]
